FAERS Safety Report 21242742 (Version 1)
Quarter: 2022Q3

REPORT INFORMATION
  Report Type: Spontaneous
  Country: US (occurrence: US)
  Receive Date: 20220823
  Receipt Date: 20220823
  Transmission Date: 20221026
  Serious: No
  Sender: FDA-Public Use
  Company Number: US-NOVARTISTESTPH-NVSC2022US187381

PATIENT
  Sex: Male

DRUGS (2)
  1. HYDROCORTISONE [Suspect]
     Active Substance: HYDROCORTISONE
     Indication: Injection site rash
     Dosage: UNK
     Route: 065
     Dates: start: 202207
  2. PEGASYS [Concomitant]
     Active Substance: PEGINTERFERON ALFA-2A
     Indication: Product used for unknown indication
     Dosage: UNK
     Route: 065
     Dates: start: 20220722

REACTIONS (1)
  - Drug ineffective [Unknown]
